FAERS Safety Report 6209347-X (Version None)
Quarter: 2009Q2

REPORT INFORMATION
  Report Type: 
  Country: None (occurrence: None)
  Receive Date: 20090529
  Receipt Date: 20090521
  Transmission Date: 20091009
  Serious: Yes (Hospitalization)
  Sender: FDA-Public Use
  Company Number: US-GENENTECH-204298

PATIENT
  Age: 52 Year
  Sex: Female

DRUGS (7)
  1. TRASTUZUMAB [Suspect]
     Indication: BREAST CANCER
     Dosage: 280 MG, SINGLE
     Route: 042
     Dates: start: 20030908, end: 20030908
  2. TRASTUZUMAB [Suspect]
     Dosage: 140 MG, 1/WEEK
     Route: 042
     Dates: start: 20030917
  3. DOCETAXEL [Suspect]
     Indication: BREAST CANCER
     Dosage: 136 MG, Q3W
     Route: 042
     Dates: start: 20030909
  4. CARBOPLATIN [Suspect]
     Indication: BREAST CANCER
     Dosage: 630 MG, Q3W
     Route: 042
     Dates: start: 20030909
  5. DEXAMETHASONE TAB [Concomitant]
     Indication: PREMEDICATION
     Dosage: 16 MG, UNK
     Route: 048
     Dates: start: 20040105, end: 20040107
  6. DEXAMETHASONE TAB [Concomitant]
     Dosage: 8 MG, UNK
     Route: 048
     Dates: start: 20040107, end: 20040107
  7. ZOFRAN [Concomitant]
     Indication: PROPHYLAXIS
     Dosage: 16 MG, UNK
     Route: 048
     Dates: start: 20040107, end: 20040107

REACTIONS (1)
  - FEBRILE NEUTROPENIA [None]
